FAERS Safety Report 13678478 (Version 3)
Quarter: 2017Q4

REPORT INFORMATION
  Report Type: Spontaneous
  Country: JP (occurrence: JP)
  Receive Date: 20170622
  Receipt Date: 20171002
  Transmission Date: 20180320
  Serious: Yes (Hospitalization, Other)
  Sender: FDA-Public Use
  Company Number: JP-DSJP-DSJ-2017-118751

PATIENT

DRUGS (5)
  1. ARTIST TABLETS 10MG [Suspect]
     Active Substance: CARVEDILOL
     Dosage: 12.5MG/DAY
     Route: 065
     Dates: start: 20170512
  2. WARFARIN                           /00014803/ [Suspect]
     Active Substance: WARFARIN
     Indication: ATRIAL FIBRILLATION
     Dosage: 3.25 MG, QD
     Route: 048
     Dates: start: 200306, end: 20170222
  3. ARTIST TABLETS 10MG [Suspect]
     Active Substance: CARVEDILOL
     Indication: ATRIAL FIBRILLATION
     Dosage: 10 MG, QD
     Route: 048
     Dates: start: 20170421, end: 20170511
  4. ARTIST TABLETS 10MG [Suspect]
     Active Substance: CARVEDILOL
     Indication: HYPERTENSION
     Dosage: 20 MG, QD
     Route: 048
     Dates: start: 20130920, end: 20170222
  5. OLMETEC OD TABLETS 10MG [Suspect]
     Active Substance: OLMESARTAN MEDOXOMIL
     Indication: HYPERTENSION
     Dosage: 10 MG, QD
     Route: 048
     Dates: start: 20170120, end: 20170222

REACTIONS (3)
  - Heart rate decreased [Recovering/Resolving]
  - International normalised ratio increased [Unknown]
  - Interstitial lung disease [Recovering/Resolving]

NARRATIVE: CASE EVENT DATE: 20170222
